FAERS Safety Report 11280224 (Version 1)
Quarter: 2015Q3

REPORT INFORMATION
  Report Type: Spontaneous
  Country: US (occurrence: US)
  Receive Date: 20150717
  Receipt Date: 20150717
  Transmission Date: 20151125
  Serious: Yes (Life-Threatening, Other)
  Sender: FDA-Public Use
  Company Number: US-JNJFOC-20131217005

PATIENT
  Age: 54 Year
  Sex: Male

DRUGS (2)
  1. CLADRIBINE. [Suspect]
     Active Substance: CLADRIBINE
     Indication: HAIRY CELL LEUKAEMIA
     Dosage: 2-HOUR INTRAVENOUS INFUSION
     Route: 042
  2. RITUXIMAB [Suspect]
     Active Substance: RITUXIMAB
     Indication: HAIRY CELL LEUKAEMIA
     Route: 065

REACTIONS (14)
  - Rhinitis [Unknown]
  - Alanine aminotransferase abnormal [Unknown]
  - Febrile neutropenia [Unknown]
  - Aspartate aminotransferase abnormal [Unknown]
  - Platelet count abnormal [Unknown]
  - Dizziness [Unknown]
  - Lymphopenia [Unknown]
  - Leukopenia [Unknown]
  - Nausea [Unknown]
  - Fatigue [Unknown]
  - Hyperhidrosis [Unknown]
  - Neutropenia [Unknown]
  - Hypoalbuminaemia [Unknown]
  - Incorrect dose administered [Unknown]
